FAERS Safety Report 5345029-4 (Version None)
Quarter: 2007Q2

REPORT INFORMATION
  Report Type: 
  Country: None (occurrence: None)
  Receive Date: 20070425
  Receipt Date: 20060403
  Transmission Date: 20071010
  Serious: Yes (Other)
  Sender: FDA-Public Use
  Company Number: 2006-BP-03043BP

PATIENT
  Age: 58 Year
  Sex: Male
  Weight: 84.1 kg

DRUGS (1)
  1. FLOMAX [Suspect]
     Indication: BENIGN PROSTATIC HYPERPLASIA
     Dosage: (0.4 MG),PO
     Route: 048

REACTIONS (1)
  - PRIAPISM [None]
